FAERS Safety Report 21106650 (Version 1)
Quarter: 2022Q3

REPORT INFORMATION
  Report Type: Spontaneous
  Country: US (occurrence: None)
  Receive Date: 20220720
  Receipt Date: 20220720
  Transmission Date: 20221027
  Serious: Yes (Other)
  Sender: FDA-Public Use
  Company Number: None

PATIENT
  Age: 59 Year
  Sex: Male
  Weight: 93.15 kg

DRUGS (2)
  1. NIRMATRELVIR\RITONAVIR [Suspect]
     Active Substance: NIRMATRELVIR\RITONAVIR
     Indication: COVID-19
     Dosage: 300 MG TWICE A DAY ORAL?
     Route: 048
     Dates: start: 20220629, end: 20220629
  2. NIRMATRELVIR/RITONAVIR -Paxlovid [Concomitant]
     Dates: start: 20220629, end: 20220629

REACTIONS (5)
  - Dyspnoea [None]
  - Oropharyngeal pain [None]
  - Dysphagia [None]
  - Throat tightness [None]
  - Obstructive sleep apnoea syndrome [None]

NARRATIVE: CASE EVENT DATE: 20220629
